FAERS Safety Report 7832597-3 (Version None)
Quarter: 2011Q4

REPORT INFORMATION
  Report Type: 
  Country: None (occurrence: None)
  Receive Date: 20111024
  Receipt Date: 20111014
  Transmission Date: 20120403
  Serious: Yes (Other)
  Sender: FDA-Public Use
  Company Number: US-BIOGENIDEC-2011BI040027

PATIENT
  Sex: Female

DRUGS (2)
  1. STUDY MEDICATION (NOS) [Concomitant]
     Indication: MULTIPLE SCLEROSIS
     Dates: start: 20080101, end: 20080101
  2. AVONEX [Suspect]
     Indication: MULTIPLE SCLEROSIS
     Route: 030
     Dates: start: 20030101, end: 20050101

REACTIONS (1)
  - BREAST CANCER [None]
